FAERS Safety Report 10676862 (Version 6)
Quarter: 2015Q2

REPORT INFORMATION
  Report Type: Report from Study
  Country: US (occurrence: US)
  Receive Date: 20141226
  Receipt Date: 20150430
  Transmission Date: 20150821
  Serious: Yes (Life-Threatening, Hospitalization, Other)
  Sender: FDA-Public Use
  Company Number: US-AMGEN-USASL2014100053

PATIENT
  Age: 50 Year
  Sex: Female
  Weight: 67.12 kg

DRUGS (14)
  1. ENBREL [Suspect]
     Active Substance: ETANERCEPT
     Indication: RHEUMATOID ARTHRITIS
     Dosage: UNK, QWK
     Route: 065
     Dates: end: 201003
  2. ZITHROMAX [Suspect]
     Active Substance: AZITHROMYCIN DIHYDRATE
     Indication: OROPHARYNGEAL PAIN
     Dosage: UNK
     Route: 065
     Dates: start: 2011, end: 2011
  3. XELJANZ [Suspect]
     Active Substance: TOFACITINIB CITRATE
     Indication: PRODUCT USED FOR UNKNOWN INDICATION
     Dosage: 5 MG, UNK (ONE TABLET DAILY)
     Route: 065
  4. ACETAMINOPHEN AND CODEINE [Concomitant]
     Active Substance: ACETAMINOPHEN\CODEINE PHOSPHATE
     Dosage: 300/30 MG, ONE TABLET THREE TIMES A DAY AS NEEDED
  5. ERYTHROMYCIN. [Suspect]
     Active Substance: ERYTHROMYCIN
     Indication: OROPHARYNGEAL PAIN
     Dosage: UNK
     Route: 065
     Dates: start: 2011, end: 2011
  6. LISINOPRIL HCTZ [Concomitant]
     Active Substance: HYDROCHLOROTHIAZIDE\LISINOPRIL
     Dosage: 20/25 MG, TABLETS ONE TABLET DAILY
  7. METHOTREXATE [Suspect]
     Active Substance: METHOTREXATE
     Indication: RHEUMATOID ARTHRITIS
     Dosage: 5 MG, BY MONTH MONDAY, WEDNESDAY AND FRIDAY
     Route: 048
     Dates: start: 1989, end: 201403
  8. CLINORIL [Suspect]
     Active Substance: SULINDAC
     Indication: RHEUMATOID ARTHRITIS
     Dosage: 5 MG, QD
     Route: 065
     Dates: end: 2010
  9. MORPHINE [Concomitant]
     Active Substance: MORPHINE
  10. PREDNISONE. [Concomitant]
     Active Substance: PREDNISONE
     Dosage: 5 MG, TID
     Route: 048
  11. GABAPENTIN. [Concomitant]
     Active Substance: GABAPENTIN
     Indication: NEURALGIA
     Dosage: 100 MG, CAPSULES ONE 8 HOURS
  12. ASPIRIN                            /00002701/ [Suspect]
     Active Substance: ASPIRIN
     Indication: PRODUCT USED FOR UNKNOWN INDICATION
     Dosage: UNK
     Route: 065
  13. GOLD [Suspect]
     Active Substance: GOLD
     Indication: PRODUCT USED FOR UNKNOWN INDICATION
     Dosage: UNK
     Route: 065
     Dates: start: 1989
  14. LIDOCAINE. [Concomitant]
     Active Substance: LIDOCAINE
     Indication: PAIN
     Dosage: UNK (TWO PATCHES EVERY 12 HOUR)

REACTIONS (38)
  - Influenza [Unknown]
  - Knee operation [Unknown]
  - Drug hypersensitivity [Unknown]
  - Miliaria [Recovered/Resolved]
  - Carpal tunnel syndrome [Unknown]
  - Apparent death [Recovered/Resolved]
  - Rash papular [Recovered/Resolved]
  - Vomiting [Unknown]
  - Herpes zoster [Recovered/Resolved]
  - Gastrointestinal disorder [Recovered/Resolved]
  - Incorrect route of drug administration [Unknown]
  - Rotator cuff syndrome [Unknown]
  - Pharyngeal oedema [Unknown]
  - Oropharyngeal pain [Recovered/Resolved]
  - Mastoid disorder [Unknown]
  - Drug effect incomplete [Unknown]
  - Rheumatoid arthritis [Unknown]
  - Muscle rupture [Unknown]
  - Blister [Unknown]
  - Tendonitis [Unknown]
  - Pyrexia [Unknown]
  - Large intestine perforation [Recovered/Resolved]
  - Loss of consciousness [Recovered/Resolved]
  - Clostridium difficile infection [Recovering/Resolving]
  - Swelling face [Unknown]
  - Swollen tongue [Unknown]
  - Abdominal distension [Unknown]
  - Road traffic accident [Recovered/Resolved]
  - Skin ulcer [Recovered/Resolved]
  - Tongue disorder [Unknown]
  - Rash vesicular [Recovered/Resolved]
  - Post herpetic neuralgia [Unknown]
  - Diverticulitis [Recovered/Resolved]
  - Throat tightness [Unknown]
  - Diarrhoea [Unknown]
  - Surgery [Unknown]
  - Lip swelling [Unknown]
  - Scar [Unknown]

NARRATIVE: CASE EVENT DATE: 1989
